FAERS Safety Report 4710269-1 (Version None)
Quarter: 2005Q3

REPORT INFORMATION
  Report Type: 
  Country: None (occurrence: None)
  Receive Date: 20050711
  Receipt Date: 20050623
  Transmission Date: 20060218
  Serious: Yes (Life-Threatening, Hospitalization, Disabling, Other)
  Sender: FDA-Public Use
  Company Number: US-JNJFOC-20040707930

PATIENT
  Sex: Male
  Weight: 63.96 kg

DRUGS (30)
  1. REMICADE [Suspect]
     Route: 042
  2. REMICADE [Suspect]
     Indication: CROHN'S DISEASE
     Route: 042
  3. BENADRYL [Concomitant]
     Route: 040
  4. BENADRYL [Concomitant]
     Indication: PREMEDICATION
     Route: 040
  5. FESO4 [Concomitant]
  6. SYNTHROID [Concomitant]
  7. PREDNISONE TAB [Concomitant]
  8. HUMALOG [Concomitant]
     Indication: DIABETES MELLITUS
     Dosage: 38 UNITS IN AM, 20 UNITS IN HS SLIDING SCALE
     Route: 050
  9. ULTRALENTE [Concomitant]
     Route: 050
  10. ASCORBIC ACID [Concomitant]
  11. FLAGYL [Concomitant]
  12. CIPRO [Concomitant]
  13. ASOCOL [Concomitant]
  14. PREVACID [Concomitant]
  15. MERCAPTOPURINE [Concomitant]
  16. MUTIVITAMINS [Concomitant]
  17. MUTIVITAMINS [Concomitant]
  18. MUTIVITAMINS [Concomitant]
  19. MUTIVITAMINS [Concomitant]
  20. MUTIVITAMINS [Concomitant]
  21. MUTIVITAMINS [Concomitant]
  22. MUTIVITAMINS [Concomitant]
  23. MUTIVITAMINS [Concomitant]
  24. COUMADIN [Concomitant]
     Dosage: DISCONTINUED FOR A WEEK
  25. PROTONIX [Concomitant]
  26. FOLIC ACID [Concomitant]
  27. ISOSORBIDE [Concomitant]
  28. PLAVIX [Concomitant]
  29. MONOPRIL [Concomitant]
  30. PROCARDIA [Concomitant]

REACTIONS (29)
  - ADRENOCORTICAL INSUFFICIENCY ACUTE [None]
  - ALOPECIA [None]
  - BACTERIAL INFECTION [None]
  - BLOOD POTASSIUM DECREASED [None]
  - BLOOD UREA INCREASED [None]
  - CHEST PAIN [None]
  - CROHN'S DISEASE [None]
  - DERMAL CYST [None]
  - DIABETES MELLITUS INADEQUATE CONTROL [None]
  - DYSPNOEA [None]
  - ENCEPHALOPATHY [None]
  - FLUSHING [None]
  - GASTROENTERITIS VIRAL [None]
  - HEART RATE DECREASED [None]
  - HYPERGLYCAEMIA [None]
  - HYPERHIDROSIS [None]
  - INCISION SITE ABSCESS [None]
  - INFECTED SEBACEOUS CYST [None]
  - INFUSION RELATED REACTION [None]
  - MALNUTRITION [None]
  - MUSCULAR WEAKNESS [None]
  - NAIL INFECTION [None]
  - OXYGEN SATURATION DECREASED [None]
  - PAIN IN EXTREMITY [None]
  - SERUM SICKNESS [None]
  - SUPERIOR SAGITTAL SINUS THROMBOSIS [None]
  - TACHYCARDIA [None]
  - TENDONITIS [None]
  - URINARY TRACT INFECTION [None]
